FAERS Safety Report 5838090-1 (Version None)
Quarter: 2008Q3

REPORT INFORMATION
  Report Type: 
  Country: None (occurrence: None)
  Receive Date: 20080808
  Receipt Date: 20080602
  Transmission Date: 20090109
  Serious: No
  Sender: FDA-Public Use
  Company Number: A0732266A

PATIENT
  Sex: Female

DRUGS (4)
  1. PAXIL [Suspect]
     Indication: DRUG USE FOR UNKNOWN INDICATION
     Dosage: 80MG UNKNOWN
     Route: 048
  2. LEXAPRO [Suspect]
     Indication: DRUG USE FOR UNKNOWN INDICATION
     Dosage: 20MGD PER DAY
     Route: 048
  3. SEROQUEL [Concomitant]
  4. ATIVAN [Concomitant]
     Indication: ANXIETY

REACTIONS (2)
  - ADVERSE DRUG REACTION [None]
  - PANIC ATTACK [None]
